FAERS Safety Report 13173866 (Version 1)
Quarter: 2017Q1

REPORT INFORMATION
  Report Type: Spontaneous
  Country: US (occurrence: US)
  Receive Date: 20170201
  Receipt Date: 20170201
  Transmission Date: 20170428
  Serious: No
  Sender: FDA-Public Use
  Company Number: US-ABBVIE-16K-163-1801274-00

PATIENT
  Weight: 66.74 kg

DRUGS (4)
  1. HUMIRA [Suspect]
     Active Substance: ADALIMUMAB
     Indication: RHEUMATOID ARTHRITIS
     Route: 058
     Dates: start: 2003
  2. VITAMIN D (NON-ABBVIE) [Concomitant]
     Indication: RHEUMATOID ARTHRITIS
  3. METHOTREXATE (NON-ABBVIE) [Concomitant]
     Indication: RHEUMATOID ARTHRITIS
  4. CHONDROITIN (NON-ABBVIE) [Concomitant]
     Indication: RHEUMATOID ARTHRITIS

REACTIONS (6)
  - Hyperlipidaemia [Recovered/Resolved]
  - Inadequate diet [Not Recovered/Not Resolved]
  - Discomfort [Not Recovered/Not Resolved]
  - Weight decreased [Not Recovered/Not Resolved]
  - Pain [Not Recovered/Not Resolved]
  - Skin plaque [Not Recovered/Not Resolved]

NARRATIVE: CASE EVENT DATE: 2014
